FAERS Safety Report 24659269 (Version 2)
Quarter: 2024Q4

REPORT INFORMATION
  Report Type: Spontaneous
  Country: US (occurrence: US)
  Receive Date: 20241125
  Receipt Date: 20241205
  Transmission Date: 20250115
  Serious: No
  Sender: ROCHE
  Company Number: US-ROCHE-10000137656

PATIENT
  Age: 30 Year
  Sex: Female

DRUGS (2)
  1. XOLAIR PFS [Suspect]
     Active Substance: OMALIZUMAB
     Indication: Idiopathic urticaria
     Dosage: STRENGTH: 150MG/ML??2, 150 MG PREFILLED SYRINGES PER MONTHLY DOSE
     Route: 058
  2. XOLAIR PFS [Suspect]
     Active Substance: OMALIZUMAB

REACTIONS (3)
  - Device use issue [Unknown]
  - No adverse event [Unknown]
  - Underdose [Unknown]

NARRATIVE: CASE EVENT DATE: 20241101
